FAERS Safety Report 13573611 (Version 1)
Quarter: 2017Q2

REPORT INFORMATION
  Report Type: Spontaneous
  Country: BE (occurrence: BE)
  Receive Date: 20170523
  Receipt Date: 20170523
  Transmission Date: 20170830
  Serious: Yes (Life-Threatening, Hospitalization, Other)
  Sender: FDA-Public Use
  Company Number: BE-HERITAGE PHARMACEUTICALS-2017HTG00115

PATIENT
  Age: 69 Year
  Sex: Male

DRUGS (2)
  1. ACYCLOVIR. [Suspect]
     Active Substance: ACYCLOVIR
     Indication: OPHTHALMIC HERPES ZOSTER
     Dosage: 800 MG, 5 ^DD^
     Route: 048
     Dates: start: 201505
  2. ACYCLOVIR. [Suspect]
     Active Substance: ACYCLOVIR
     Indication: NEURALGIA
     Dosage: 750 MG, 3 ^DD^
     Route: 042
     Dates: start: 201505

REACTIONS (5)
  - Coma [Recovered/Resolved]
  - Encephalopathy [Recovered/Resolved]
  - Areflexia [Recovered/Resolved]
  - Pneumonia aspiration [Recovered/Resolved]
  - Acute kidney injury [Recovered/Resolved]

NARRATIVE: CASE EVENT DATE: 201505
